FAERS Safety Report 4490088-4 (Version None)
Quarter: 2004Q4

REPORT INFORMATION
  Report Type: 
  Country: None (occurrence: None)
  Receive Date: 20041027
  Receipt Date: 20041016
  Transmission Date: 20050328
  Serious: Yes (Hospitalization, Other)
  Sender: FDA-Public Use
  Company Number: 2004239428US

PATIENT
  Age: 65 Year
  Sex: Female
  Weight: 81.2 kg

DRUGS (9)
  1. CELEBREX [Suspect]
     Indication: OSTEOARTHRITIS
     Dosage: ORAL
     Route: 048
     Dates: end: 20020101
  2. ROFECOXIB [Suspect]
     Dates: start: 20020101
  3. LISINOPRIL [Concomitant]
  4. VICODIN [Concomitant]
  5. NEURONTIN [Concomitant]
  6. ASPIRIN [Concomitant]
  7. SYNTHROID [Concomitant]
  8. LASIX [Concomitant]
  9. MULTIVITAMINS, PLAIN [Concomitant]

REACTIONS (9)
  - ARTHRALGIA [None]
  - BLOOD CHOLESTEROL INCREASED [None]
  - BLOOD POTASSIUM INCREASED [None]
  - BLOOD TRIGLYCERIDES INCREASED [None]
  - CARDIAC ARREST [None]
  - CARDIAC FAILURE CONGESTIVE [None]
  - CHEST PAIN [None]
  - CORONARY ARTERY DISEASE [None]
  - DRUG INEFFECTIVE [None]
